FAERS Safety Report 10433849 (Version 2)
Quarter: 2014Q3

REPORT INFORMATION
  Report Type: Spontaneous
  Country: US (occurrence: US)
  Receive Date: 20140905
  Receipt Date: 20140905
  Transmission Date: 20150326
  Serious: Yes (Hospitalization)
  Sender: FDA-Public Use
  Company Number: US-GLAXOSMITHKLINE-A0744980A

PATIENT
  Age: 46 Year
  Sex: Female
  Weight: 81.8 kg

DRUGS (4)
  1. METFORMIN [Concomitant]
     Active Substance: METFORMIN HYDROCHLORIDE
  2. AVANDIA [Suspect]
     Active Substance: ROSIGLITAZONE MALEATE
     Indication: TYPE 2 DIABETES MELLITUS
     Dosage: 8MG PER DAY
     Route: 048
     Dates: start: 200008, end: 200706
  3. AMARYL [Concomitant]
     Active Substance: GLIMEPIRIDE
  4. GLUCOPHAGE [Concomitant]
     Active Substance: METFORMIN HYDROCHLORIDE

REACTIONS (11)
  - Coronary artery disease [Unknown]
  - Cardiac failure congestive [Unknown]
  - Cardiac arrest [Unknown]
  - Pulmonary hypertension [Unknown]
  - Cardiovascular disorder [Unknown]
  - Ventricular tachycardia [Unknown]
  - Ventricular fibrillation [Unknown]
  - Angina unstable [Unknown]
  - Myocardial infarction [Unknown]
  - Myocardial ischaemia [Unknown]
  - Ischaemic cardiomyopathy [Unknown]

NARRATIVE: CASE EVENT DATE: 200008
